FAERS Safety Report 7687396-2 (Version None)
Quarter: 2011Q3

REPORT INFORMATION
  Report Type: 
  Country: None (occurrence: None)
  Receive Date: 20110816
  Receipt Date: 20110809
  Transmission Date: 20111222
  Serious: Yes (Death)
  Sender: FDA-Public Use
  Company Number: US-CELGENEUS-163-21880-11071746

PATIENT
  Sex: Male

DRUGS (2)
  1. REVLIMID [Suspect]
     Indication: GLIOBLASTOMA MULTIFORME
     Dosage: 10MG ALTERNATING WITH 25MG
     Route: 048
     Dates: start: 20110405
  2. REVLIMID [Suspect]
     Dosage: 10 MILLIGRAM
     Route: 048
     Dates: end: 20110503

REACTIONS (1)
  - GLIOBLASTOMA MULTIFORME [None]
